FAERS Safety Report 4790240-4 (Version None)
Quarter: 2005Q3

REPORT INFORMATION
  Report Type: 
  Country: None (occurrence: None)
  Receive Date: 20050914
  Receipt Date: 20050524
  Transmission Date: 20060218
  Serious: Yes (Death)
  Sender: FDA-Public Use
  Company Number: 062-20785-05050406

PATIENT
  Age: 79 Year
  Sex: Female

DRUGS (4)
  1. THALIDOMIDE  - PHARMION (THALIDOMIDE) (50 MILLIGRAM, CAPSULES) [Suspect]
     Indication: MULTIPLE MYELOMA
     Dosage: 250 MG, DAILY, ORAL
     Route: 048
     Dates: start: 20041001, end: 20050501
  2. DIZEPAM (DIAZEPAM) [Concomitant]
  3. FUROSEMIDE [Concomitant]
  4. PANTOPRAZOLE SODIUM [Concomitant]

REACTIONS (2)
  - DEATH [None]
  - DISEASE PROGRESSION [None]
